FAERS Safety Report 21313645 (Version 1)
Quarter: 2022Q3

REPORT INFORMATION
  Report Type: Spontaneous
  Country: RS (occurrence: RS)
  Receive Date: 20220909
  Receipt Date: 20220909
  Transmission Date: 20221027
  Serious: Yes (Hospitalization)
  Sender: FDA-Public Use
  Company Number: RS-GLAXOSMITHKLINE-RS2022EME128446

PATIENT

DRUGS (2)
  1. LAMICTAL [Suspect]
     Active Substance: LAMOTRIGINE
     Indication: Epilepsy
     Dosage: 1 DF, QD ONCE DAILY FOR TWO WEEKS
     Route: 048
     Dates: start: 20220801, end: 20220820
  2. LAMICTAL [Suspect]
     Active Substance: LAMOTRIGINE
     Dosage: 1 DF, BID 1 TABLET TWICE DAILY FOR 7 DAYS
     Route: 048
     Dates: start: 20220801, end: 20220820

REACTIONS (5)
  - Rash [Recovering/Resolving]
  - Pyrexia [Recovered/Resolved]
  - Erythema [Unknown]
  - Pruritus [Recovering/Resolving]
  - Laboratory test abnormal [Recovering/Resolving]

NARRATIVE: CASE EVENT DATE: 20220801
